FAERS Safety Report 14990771 (Version 1)
Quarter: 2018Q2

REPORT INFORMATION
  Report Type: Report from Study
  Country: None (occurrence: DE)
  Receive Date: 20180608
  Receipt Date: 20180608
  Transmission Date: 20180711
  Serious: Yes (Hospitalization, Other)
  Sender: FDA-Public Use
  Company Number: DE-BAUSCH-BL-2018-016068

PATIENT
  Age: 70 Year
  Sex: Male

DRUGS (11)
  1. LORAZEPAM. [Concomitant]
     Active Substance: LORAZEPAM
     Indication: MALIGNANT NEOPLASM PROGRESSION
     Route: 065
     Dates: start: 20170822, end: 201710
  2. AMPHO MORONAL [Concomitant]
     Active Substance: AMPHOTERICIN B
     Indication: MALIGNANT NEOPLASM PROGRESSION
     Route: 065
     Dates: start: 20170801
  3. BRESBEN [Concomitant]
     Indication: CARDIOVASCULAR DISORDER
     Dosage: THERAPY STARTED PRIOR TO START OF NIVOLUMAB TREATMENT AND DOSE: 1 DF= 50/20MG
     Route: 065
  4. AGOMELATIN [Concomitant]
     Active Substance: AGOMELATINE
     Indication: MALIGNANT NEOPLASM PROGRESSION
     Route: 065
     Dates: start: 20170822, end: 20170909
  5. VELMETIA [Concomitant]
     Active Substance: METFORMIN\SITAGLIPTIN
     Indication: METABOLIC DISORDER
     Dosage: THERAPY STARTED PRIOR TO START OF NIVOLUMAB TREATMENT
     Route: 065
  6. NIVOLUMAB [Suspect]
     Active Substance: NIVOLUMAB
     Indication: SQUAMOUS CELL CARCINOMA OF LUNG
     Route: 042
     Dates: start: 20170502
  7. RAMILICH COMP [Concomitant]
     Active Substance: HYDROCHLOROTHIAZIDE\RAMIPRIL
     Indication: CARDIOVASCULAR DISORDER
     Dosage: THERAPY STARTED PRIOR TO START OF NIVOLUMAB TREATMENT AND DOSE: 1 DF= 5/25MG
     Route: 065
  8. RAMILICH COMP [Concomitant]
     Active Substance: HYDROCHLOROTHIAZIDE\RAMIPRIL
     Dosage: THERAPY STARTED PRIOR TO START OF NIVOLUMAB TREATMENT AND DOSE: 1 DF= 5/25MG
     Route: 065
  9. PANTOPRAZOL [Concomitant]
     Active Substance: PANTOPRAZOLE SODIUM
     Indication: PROPHYLAXIS
     Route: 065
     Dates: start: 20170907
  10. PREDNISOLONE. [Suspect]
     Active Substance: PREDNISOLONE
     Indication: PRODUCT USED FOR UNKNOWN INDICATION
     Route: 065
     Dates: start: 20170907
  11. XELEVIA [Concomitant]
     Active Substance: SITAGLIPTIN PHOSPHATE
     Indication: METABOLIC DISORDER
     Dosage: THERAPY STARTED PRIOR TO START OF NIVOLUMAB TREATMENT
     Route: 065

REACTIONS (6)
  - Suicide attempt [Recovered/Resolved]
  - Bronchitis [Recovered/Resolved]
  - Moraxella infection [Recovered/Resolved]
  - Delirium [Recovered/Resolved]
  - Panic reaction [Recovered/Resolved]
  - Lung infection [Recovered/Resolved]

NARRATIVE: CASE EVENT DATE: 20170906
